FAERS Safety Report 5128604-1 (Version None)
Quarter: 2006Q4

REPORT INFORMATION
  Report Type: 
  Country: None (occurrence: None)
  Receive Date: 20061011
  Receipt Date: 20060928
  Transmission Date: 20070319
  Serious: Yes (Death, Hospitalization)
  Sender: FDA-Public Use
  Company Number: 227149

PATIENT
  Age: 26 Year
  Sex: Female
  Weight: 109 kg

DRUGS (5)
  1. EFALIZUMAB (EFALIZUMAB) PWDR + SOLVENT, INJECTION SOLN, 125MG [Suspect]
     Indication: PSORIASIS
     Dosage: 1.1 ML, 1/WEEK, SUBCUTANEOUS
     Route: 058
     Dates: start: 20050622, end: 20060526
  2. EFALIZUMAB (EFALIZUMAB) PWDR + SOLVENT, INJECTION SOLN, 125MG [Suspect]
     Indication: PSORIASIS
     Dosage: 1.1 ML, 1/WEEK, SUBCUTANEOUS
     Route: 058
     Dates: start: 20060606
  3. CLOBEX [Concomitant]
  4. COUMADIN [Concomitant]
  5. PROTOPIC OINTMENT (TACROLIMUS) [Concomitant]

REACTIONS (23)
  - BACK PAIN [None]
  - BRAIN DEATH [None]
  - BRAIN STEM SYNDROME [None]
  - CELL DEATH [None]
  - CENTRAL NERVOUS SYSTEM NECROSIS [None]
  - COMA [None]
  - ENCEPHALITIS VIRAL [None]
  - HEPATIC STEATOSIS [None]
  - HEPATITIS [None]
  - LYMPHOID TISSUE HYPERPLASIA [None]
  - MENINGITIS VIRAL [None]
  - MUSCULOSKELETAL DISCOMFORT [None]
  - MYOCARDITIS [None]
  - OBESITY [None]
  - OEDEMA [None]
  - PLASMACYTOSIS [None]
  - PULMONARY CONGESTION [None]
  - RENAL DISORDER [None]
  - RESPIRATORY FAILURE [None]
  - SPLENOMEGALY [None]
  - SUBARACHNOID HAEMORRHAGE [None]
  - SUBDURAL HAEMORRHAGE [None]
  - VIRAL INFECTION [None]
